FAERS Safety Report 4809669-0 (Version None)
Quarter: 2005Q4

REPORT INFORMATION
  Report Type: 
  Country: None (occurrence: None)
  Receive Date: 20051021
  Receipt Date: 20050903
  Transmission Date: 20060501
  Serious: Yes (Hospitalization, Other)
  Sender: FDA-Public Use
  Company Number: USA020920681

PATIENT
  Age: 63 Year
  Sex: Male
  Weight: 80 kg

DRUGS (13)
  1. ZYPREXA [Suspect]
     Indication: BIPOLAR DISORDER
     Dosage: 750 MG/DAY
     Dates: start: 20010722, end: 20020826
  2. ZYPREXA [Suspect]
     Indication: SCHIZOPHRENIA
     Dosage: 750 MG/DAY
     Dates: start: 20010722, end: 20020826
  3. RABEPRAZOLE SODIUM [Concomitant]
  4. TERAZOSIN [Concomitant]
  5. DIPHENHYDRAMINE HCL [Concomitant]
  6. LITHIUM [Concomitant]
  7. ACETAMINOPHEN [Concomitant]
  8. FOLIC ACID [Concomitant]
  9. IBUPROFEN [Concomitant]
  10. MILK OF MAGNESIA TAB [Concomitant]
  11. VITAMIN WITH IRON [Concomitant]
  12. THIAMINE [Concomitant]
  13. METHOCARBAMOL [Concomitant]

REACTIONS (8)
  - AGITATION [None]
  - CARDIO-RESPIRATORY ARREST [None]
  - CONFUSIONAL STATE [None]
  - DISORIENTATION [None]
  - DYSARTHRIA [None]
  - OVERDOSE [None]
  - PULMONARY EMBOLISM [None]
  - STATUS EPILEPTICUS [None]
